FAERS Safety Report 6369414-7 (Version None)
Quarter: 2009Q3

REPORT INFORMATION
  Report Type: 
  Country: None (occurrence: None)
  Receive Date: 20090917
  Receipt Date: 20090910
  Transmission Date: 20100115
  Serious: Yes (Death, Hospitalization)
  Sender: FDA-Public Use
  Company Number: 2009AL003264

PATIENT
  Age: 51 Year
  Sex: Male

DRUGS (23)
  1. DIGOXIN [Suspect]
     Dosage: 0.25MG, DAILY, PO
     Route: 048
     Dates: start: 20061107
  2. LASIX [Concomitant]
  3. COREG [Concomitant]
  4. PHOSLO [Concomitant]
  5. LIPITOR [Concomitant]
  6. ACTOS [Concomitant]
  7. GEMFIBROZIL [Concomitant]
  8. CLONIDINE HCL [Concomitant]
  9. DIOVAN [Concomitant]
  10. LEVITRA [Concomitant]
  11. FERROUS SULFATE TAB [Concomitant]
  12. LAMICTAL [Concomitant]
  13. ALPRAZOLAM [Concomitant]
  14. FUROSEMIDE [Concomitant]
  15. CITALOPRAM HYDROBROMIDE [Concomitant]
  16. FOLIC ACID [Concomitant]
  17. BRIMONIDINE [Concomitant]
  18. EPINEPHRINE [Concomitant]
  19. ATROPINE [Concomitant]
  20. DEXTROSE [Concomitant]
  21. AMIODARONE HCL [Concomitant]
  22. LIDOCAINE [Concomitant]
  23. VANCOMYCIN [Concomitant]

REACTIONS (20)
  - ANOXIC ENCEPHALOPATHY [None]
  - ARTERIOSCLEROSIS CORONARY ARTERY [None]
  - CARDIAC ARREST [None]
  - CARDIOMYOPATHY [None]
  - CORNEAL LIGHT REFLEX TEST ABNORMAL [None]
  - ECONOMIC PROBLEM [None]
  - ELECTROMECHANICAL DISSOCIATION [None]
  - FALL [None]
  - HYPOXIC ENCEPHALOPATHY [None]
  - MULTI-ORGAN FAILURE [None]
  - PNEUMONIA ASPIRATION [None]
  - PUPILLARY REFLEX IMPAIRED [None]
  - PYREXIA [None]
  - RENAL FAILURE ACUTE [None]
  - RENAL TUBULAR NECROSIS [None]
  - SURGERY [None]
  - THROMBOCYTOPENIA [None]
  - VENTRICULAR FIBRILLATION [None]
  - VENTRICULAR TACHYCARDIA [None]
  - WHITE BLOOD CELL COUNT INCREASED [None]
